FAERS Safety Report 5525646-9 (Version None)
Quarter: 2007Q4

REPORT INFORMATION
  Report Type: 
  Country: None (occurrence: None)
  Receive Date: 20071126
  Receipt Date: 20071119
  Transmission Date: 20080405
  Serious: Yes (Other)
  Sender: FDA-Public Use
  Company Number: US-JNJFOC-20071108312

PATIENT
  Age: 45 Year
  Sex: Female
  Weight: 56.7 kg

DRUGS (3)
  1. LEVAQUIN [Suspect]
     Indication: INFECTION
     Route: 048
  2. ADVAIR DISKUS 100/50 [Concomitant]
     Indication: WHEEZING
     Route: 055
  3. ALBUTEROL [Concomitant]
     Indication: WHEEZING
     Route: 055

REACTIONS (3)
  - PARAESTHESIA [None]
  - PNEUMONIA [None]
  - PRURITUS GENERALISED [None]
